FAERS Safety Report 17435737 (Version 7)
Quarter: 2021Q4

REPORT INFORMATION
  Report Type: Spontaneous
  Country: FR (occurrence: FR)
  Receive Date: 20200219
  Receipt Date: 20211208
  Transmission Date: 20220303
  Serious: Yes (Death, Hospitalization, Other)
  Sender: FDA-Public Use
  Company Number: None

PATIENT
  Age: 71 Year
  Sex: Male

DRUGS (42)
  1. CLOBAZAM [Suspect]
     Active Substance: CLOBAZAM
     Indication: Product used for unknown indication
     Dosage: 10 MG,TID
     Route: 048
  2. CLOBAZAM [Suspect]
     Active Substance: CLOBAZAM
     Dosage: 30 MG, TID
     Route: 048
  3. ALTACE [Suspect]
     Active Substance: RAMIPRIL
     Indication: Product used for unknown indication
     Dosage: 5 MG,QD
     Route: 048
  4. ESOMEPRAZOLE [Suspect]
     Active Substance: ESOMEPRAZOLE
     Indication: Product used for unknown indication
     Dosage: 20 MG, QD
     Route: 048
  5. PROPRANOLOL HYDROCHLORIDE [Suspect]
     Active Substance: PROPRANOLOL HYDROCHLORIDE
     Indication: Product used for unknown indication
     Dosage: 20 MG,QD
     Route: 048
  6. CLONAZEPAM [Suspect]
     Active Substance: CLONAZEPAM
     Indication: Product used for unknown indication
     Dosage: 4 MG,QD
     Route: 048
  7. ZOPICLONE [Suspect]
     Active Substance: ZOPICLONE
     Indication: Product used for unknown indication
     Dosage: 15 MG,QD
     Route: 048
  8. LASIX [Suspect]
     Active Substance: FUROSEMIDE
     Indication: Product used for unknown indication
     Dosage: 40 MG,QD
     Route: 048
  9. VERAPAMIL HYDROCHLORIDE [Suspect]
     Active Substance: VERAPAMIL HYDROCHLORIDE
     Indication: Product used for unknown indication
     Dosage: 240 MG,QD
     Route: 048
  10. CELECOXIB [Suspect]
     Active Substance: CELECOXIB
     Indication: Product used for unknown indication
     Dosage: UNK
     Route: 065
  11. SIMVASTATIN [Suspect]
     Active Substance: SIMVASTATIN
     Indication: Product used for unknown indication
     Dosage: 20 MG,QD
     Route: 048
  12. ACETAMINOPHEN [Suspect]
     Active Substance: ACETAMINOPHEN
     Indication: Product used for unknown indication
     Dosage: 100 MG, BID
     Route: 048
  13. ACETAMINOPHEN [Suspect]
     Active Substance: ACETAMINOPHEN
     Dosage: 1000 MG, Q12H
     Route: 048
  14. ACETAMINOPHEN [Suspect]
     Active Substance: ACETAMINOPHEN
     Dosage: 200 MG, BID
     Route: 048
  15. TRIHEXYPHENIDYL HYDROCHLORIDE [Suspect]
     Active Substance: TRIHEXYPHENIDYL HYDROCHLORIDE
     Indication: Product used for unknown indication
     Dosage: 1 MG, QD
     Route: 048
  16. TRIHEXYPHENIDYL HYDROCHLORIDE [Suspect]
     Active Substance: TRIHEXYPHENIDYL HYDROCHLORIDE
     Dosage: 1 MG, QD
     Route: 048
  17. TRIHEXYPHENIDYL HYDROCHLORIDE [Suspect]
     Active Substance: TRIHEXYPHENIDYL HYDROCHLORIDE
     Dosage: 1 MG, QD
     Route: 048
  18. MIANSERIN HYDROCHLORIDE [Suspect]
     Active Substance: MIANSERIN HYDROCHLORIDE
     Indication: Product used for unknown indication
     Dosage: 60 MG,QD
     Route: 048
  19. ALBUTEROL SULFATE [Suspect]
     Active Substance: ALBUTEROL SULFATE
     Indication: Product used for unknown indication
     Dosage: 1 DF, BID
     Route: 045
  20. NITROGLYCERIN [Suspect]
     Active Substance: NITROGLYCERIN
     Indication: Product used for unknown indication
     Dosage: 10 MG,QD
     Route: 062
  21. NITROGLYCERIN [Suspect]
     Active Substance: NITROGLYCERIN
     Dosage: 10 MG, QD
     Route: 062
  22. NITROGLYCERIN [Suspect]
     Active Substance: NITROGLYCERIN
     Dosage: UNK
     Route: 062
  23. DIACEREIN [Suspect]
     Active Substance: DIACEREIN
     Indication: Product used for unknown indication
     Dosage: 50 MG, 2X/DAY (ONCE EVERY 12HOURS)
     Route: 048
  24. DIACEREIN [Suspect]
     Active Substance: DIACEREIN
     Dosage: 100 MG, BID
     Route: 048
  25. OMEPRAZOLE [Suspect]
     Active Substance: OMEPRAZOLE
     Indication: Product used for unknown indication
     Dosage: 20 MG, QD
     Route: 048
  26. PREDNISOLONE [Suspect]
     Active Substance: PREDNISOLONE
     Indication: Product used for unknown indication
     Dosage: 1 DF, 1X/DAY
     Route: 045
  27. POLYETHYLENE GLYCOL 3350 [Suspect]
     Active Substance: POLYETHYLENE GLYCOL 3350
     Indication: Product used for unknown indication
     Dosage: 2 DF, QD
     Route: 048
  28. ASPIRIN [Suspect]
     Active Substance: ASPIRIN
     Indication: Product used for unknown indication
     Dosage: 20 MG DAILY/250 MG DAILY
     Route: 048
  29. OMEPRAZOLE MAGNESIUM [Suspect]
     Active Substance: OMEPRAZOLE MAGNESIUM
     Indication: Product used for unknown indication
     Dosage: 20 MG,QD
     Route: 048
  30. OMEPRAZOLE MAGNESIUM [Suspect]
     Active Substance: OMEPRAZOLE MAGNESIUM
     Dosage: 20 MG,QD
     Route: 048
  31. ESOMEPRAZOLE MAGNESIUM [Suspect]
     Active Substance: ESOMEPRAZOLE MAGNESIUM
     Indication: Product used for unknown indication
     Dosage: 20 MG, QD
     Route: 048
  32. ASPIRIN DL-LYSINE [Suspect]
     Active Substance: ASPIRIN DL-LYSINE
     Indication: Product used for unknown indication
     Dosage: 20 MG, QD
     Route: 048
  33. ASPIRIN DL-LYSINE [Suspect]
     Active Substance: ASPIRIN DL-LYSINE
     Dosage: 250 MG, QD
     Route: 048
  34. ASPIRIN LYSINE [Suspect]
     Active Substance: ASPIRIN LYSINE
     Indication: Product used for unknown indication
     Dosage: 20 MG,QD
     Route: 048
  35. ASPIRIN LYSINE [Suspect]
     Active Substance: ASPIRIN LYSINE
     Dosage: 250 MG, QD
     Route: 048
  36. SEREVENT DISKUS [Suspect]
     Active Substance: SALMETEROL XINAFOATE
     Indication: Product used for unknown indication
     Dosage: 1 DF,BID (1 PUFF)
     Route: 045
  37. SEREVENT DISKUS [Suspect]
     Active Substance: SALMETEROL XINAFOATE
     Dosage: 2 DF, BID
     Route: 065
  38. PIPAMPERONE [Suspect]
     Active Substance: PIPAMPERONE
     Indication: Product used for unknown indication
     Dosage: 20 MG,QD
     Route: 048
  39. PREDNAZOLINE [Suspect]
     Active Substance: PREDNAZOLINE
     Indication: Product used for unknown indication
     Dosage: 1 DF, QD
     Route: 045
  40. PREDNAZOLINE [Suspect]
     Active Substance: PREDNAZOLINE
     Indication: Product used for unknown indication
     Dosage: 1 DF, QD
     Route: 065
  41. OXYGEN [Concomitant]
     Active Substance: OXYGEN
     Indication: Product used for unknown indication
     Dosage: UNK
     Route: 065
  42. OXYMETAZOLINE HYDROCHLORIDE\PREDNISOLONE SODIUM PHOSPHATE [Concomitant]
     Active Substance: OXYMETAZOLINE HYDROCHLORIDE\PREDNISOLONE SODIUM PHOSPHATE
     Indication: Product used for unknown indication
     Dosage: 1 DF, QD
     Route: 065

REACTIONS (11)
  - Cerebral artery thrombosis [Fatal]
  - Respiratory distress [Fatal]
  - Respiratory failure [Fatal]
  - Areflexia [Fatal]
  - Brain scan abnormal [Fatal]
  - Hemiplegia [Fatal]
  - Cerebrovascular accident [Fatal]
  - Disease recurrence [Fatal]
  - Facial paralysis [Fatal]
  - Ischaemic stroke [Fatal]
  - Nausea [Fatal]
